FAERS Safety Report 13258747 (Version 1)
Quarter: 2017Q1

REPORT INFORMATION
  Report Type: Report from Study
  Country: JP (occurrence: JP)
  Receive Date: 20170222
  Receipt Date: 20170222
  Transmission Date: 20170428
  Serious: Yes (Hospitalization)
  Sender: FDA-Public Use
  Company Number: JP-ACTELION-A-CH2017-149974

PATIENT
  Sex: Female

DRUGS (25)
  1. OPSUMIT [Suspect]
     Active Substance: MACITENTAN
     Indication: PULMONARY ARTERIAL HYPERTENSION
     Dosage: 10 MG, OD
     Route: 048
     Dates: start: 20150821, end: 20160630
  2. TRACLEER [Suspect]
     Active Substance: BOSENTAN
     Indication: PULMONARY ARTERIAL HYPERTENSION
     Dosage: UNK
     Route: 048
  3. ZOSYN [Suspect]
     Active Substance: PIPERACILLIN SODIUM\TAZOBACTAM SODIUM
     Indication: PNEUMONIA
     Dosage: 4.5 MG, TID
     Route: 042
     Dates: start: 20151015, end: 20151022
  4. CARBOCISTEINE [Suspect]
     Active Substance: CARBOCYSTEINE
     Indication: BRONCHIECTASIS
     Dosage: 1500 MG, QD
     Route: 048
     Dates: end: 20160525
  5. SLOW-K [Suspect]
     Active Substance: POTASSIUM CHLORIDE
     Indication: HYPOKALAEMIA
     Dosage: 1800 MG, QD
     Route: 048
     Dates: end: 20160525
  6. BISOLVON [Concomitant]
     Active Substance: BROMHEXINE HYDROCHLORIDE
  7. SYMBICORT [Suspect]
     Active Substance: BUDESONIDE\FORMOTEROL FUMARATE DIHYDRATE
     Indication: BRONCHIECTASIS
     Dosage: 1 UNK, QD
     Route: 055
  8. UNIPHYLLA [Concomitant]
     Active Substance: THEOPHYLLINE ANHYDROUS
  9. CLARITHROMYCIN. [Suspect]
     Active Substance: CLARITHROMYCIN
     Indication: BRONCHIECTASIS
     Dosage: 400 MG, QD
     Route: 048
     Dates: end: 20160525
  10. RABEPRAZOL [Suspect]
     Active Substance: RABEPRAZOLE
     Indication: PROPHYLAXIS
     Dosage: 10 MG, QD
     Route: 048
     Dates: end: 20160525
  11. ADEMPAS [Suspect]
     Active Substance: RIOCIGUAT
     Indication: PULMONARY ARTERIAL HYPERTENSION
     Dosage: 7.5 MG, QD
     Route: 048
     Dates: end: 20160116
  12. CARBOCISTEINE [Suspect]
     Active Substance: CARBOCYSTEINE
     Indication: ASTHMA
     Dosage: 750 MG, UNK
     Route: 048
     Dates: start: 20160728
  13. MOSAPRIDE [Suspect]
     Active Substance: MOSAPRIDE
     Indication: PROPHYLAXIS
     Dosage: 15 MG, QD
     Route: 048
     Dates: start: 20151016, end: 20160525
  14. BROMHEXINE [Suspect]
     Active Substance: BROMHEXINE
     Indication: ASTHMA
     Dosage: 12 MG, QD
     Route: 048
     Dates: start: 20160804
  15. SOL-MELCORT [Concomitant]
     Active Substance: METHYLPREDNISOLONE SODIUM SUCCINATE
  16. EPOPROSTENOL ACT [Suspect]
     Active Substance: EPOPROSTENOL
     Indication: PULMONARY ARTERIAL HYPERTENSION
     Dosage: 19.4 NG/KG, PER MIN
     Route: 042
  17. PREDONINE [Suspect]
     Active Substance: PREDNISOLONE
     Indication: ASTHMA
     Dosage: 5 MG, QD
     Route: 048
     Dates: end: 20160525
  18. THEO-DUR [Suspect]
     Active Substance: THEOPHYLLINE ANHYDROUS
     Indication: ASTHMA
     Dosage: 400 MG, QD
     Route: 048
     Dates: start: 20151016, end: 20160525
  19. REVATIO [Suspect]
     Active Substance: SILDENAFIL CITRATE
     Indication: PULMONARY ARTERIAL HYPERTENSION
     Dosage: 20 MG, QD
     Route: 048
     Dates: start: 20160801, end: 20160802
  20. LEVOFLOXACIN. [Concomitant]
     Active Substance: LEVOFLOXACIN
  21. OXYGEN. [Concomitant]
     Active Substance: OXYGEN
  22. OPSUMIT [Suspect]
     Active Substance: MACITENTAN
     Dosage: 2.5 MG, OD
     Route: 048
     Dates: start: 20160725
  23. AMBROXOL [Suspect]
     Active Substance: AMBROXOL
     Indication: ASTHMA
     Dosage: 45 MG, QD
     Route: 048
     Dates: start: 20151016, end: 20160525
  24. REVATIO [Suspect]
     Active Substance: SILDENAFIL CITRATE
     Dosage: 30 MG, QD
     Route: 048
     Dates: start: 20160803
  25. BERIZYM [Concomitant]
     Active Substance: CELLULASE\DIASTASE\LIPASE

REACTIONS (5)
  - Asthma [Recovered/Resolved]
  - Hypersensitivity [Unknown]
  - Pneumonia bacterial [Recovered/Resolved]
  - Anaphylactic reaction [Recovered/Resolved]
  - Drug hypersensitivity [Recovering/Resolving]

NARRATIVE: CASE EVENT DATE: 20151006
